FAERS Safety Report 4625857-0 (Version None)
Quarter: 2005Q2

REPORT INFORMATION
  Report Type: 
  Country: None (occurrence: None)
  Receive Date: 20050404
  Receipt Date: 20050325
  Transmission Date: 20051028
  Serious: Yes (Hospitalization)
  Sender: FDA-Public Use
  Company Number: 200511066FR

PATIENT
  Age: 34 Year
  Sex: Male
  Weight: 83 kg

DRUGS (9)
  1. FLAGYL [Suspect]
     Route: 042
     Dates: start: 20050131, end: 20050208
  2. LOVENOX [Suspect]
     Dates: start: 20050131, end: 20050208
  3. ROCEPHIN [Suspect]
     Route: 042
     Dates: start: 20050131, end: 20050208
  4. STILNOX [Suspect]
     Route: 048
     Dates: end: 20050208
  5. ACUPAN [Concomitant]
     Route: 048
     Dates: start: 20050131, end: 20050203
  6. PERFALGAN [Concomitant]
     Route: 042
     Dates: start: 20050131, end: 20050205
  7. AUGMENTIN '125' [Concomitant]
     Dates: start: 20050131, end: 20050131
  8. OROKEN [Concomitant]
     Dates: start: 20050207
  9. MORPHINE [Concomitant]
     Dates: start: 20050131, end: 20050203

REACTIONS (8)
  - ABDOMINAL PAIN UPPER [None]
  - ALANINE AMINOTRANSFERASE INCREASED [None]
  - ASPARTATE AMINOTRANSFERASE INCREASED [None]
  - BLOOD ALKALINE PHOSPHATASE INCREASED [None]
  - CHOLELITHIASIS [None]
  - GAMMA-GLUTAMYLTRANSFERASE INCREASED [None]
  - HEPATIC STEATOSIS [None]
  - HEPATOCELLULAR DAMAGE [None]
